FAERS Safety Report 8768954 (Version 2)
Quarter: 2012Q4

REPORT INFORMATION
  Report Type: 
  Country: US (occurrence: US)
  Receive Date: 20120904
  Receipt Date: 20121025
  Transmission Date: 20130627
  Serious: Yes (Other)
  Sender: FDA-Public Use
  Company Number: US-AMGEN-USASP2012048553

PATIENT
  Age: 49 Year
  Sex: Female
  Weight: 81.63 kg

DRUGS (7)
  1. ENBREL [Suspect]
     Indication: PSORIATIC ARTHROPATHY
     Dosage: 50 mg, qwk
     Route: 058
     Dates: start: 2005
  2. VESICARE [Concomitant]
     Dosage: 10 mg, qd
     Route: 048
  3. HYDROCHLOROTHIAZIDE [Concomitant]
     Dosage: 25 mg, qd
     Route: 048
  4. VITAMIN D /00107901/ [Concomitant]
     Dosage: 1 UNK, UNK
  5. ASPIRIN [Concomitant]
     Dosage: 6 UNK, UNK
  6. DASATINIB [Concomitant]
     Dosage: 81 UNK, qd
     Route: 048
  7. MULTIVITAMINS, PLAIN [Concomitant]
     Dosage: UNK

REACTIONS (2)
  - Parathyroid tumour benign [Unknown]
  - Hypercalcaemia [Unknown]
